FAERS Safety Report 12167666 (Version 1)
Quarter: 2016Q1

REPORT INFORMATION
  Report Type: Spontaneous
  Country: US (occurrence: US)
  Receive Date: 20160310
  Receipt Date: 20160310
  Transmission Date: 20160526
  Serious: No
  Sender: FDA-Public Use
  Company Number: US-BAYER-2016-038332

PATIENT
  Age: 89 Year
  Sex: Female
  Weight: 54.42 kg

DRUGS (2)
  1. CLARITIN [Suspect]
     Active Substance: LORATADINE
     Indication: PRURITUS
     Dosage: 1 DF, QD
     Route: 048
     Dates: start: 20160215
  2. CLARITIN [Suspect]
     Active Substance: LORATADINE
     Indication: URTICARIA

REACTIONS (4)
  - Off label use [None]
  - Therapeutic response unexpected [None]
  - Therapeutic response unexpected [None]
  - Product use issue [None]

NARRATIVE: CASE EVENT DATE: 20160216
